FAERS Safety Report 5738576-4 (Version None)
Quarter: 2008Q2

REPORT INFORMATION
  Report Type: 
  Country: None (occurrence: None)
  Receive Date: 20080514
  Receipt Date: 20080514
  Transmission Date: 20081010
  Serious: Yes (Life-Threatening, Hospitalization)
  Sender: FDA-Public Use
  Company Number: None

PATIENT
  Age: 65 Year
  Sex: Female
  Weight: 76.2043 kg

DRUGS (1)
  1. EPI PEN - 0.3 MG. [Suspect]
     Indication: ARTHROPOD STING
     Dosage: 0.3 MG 1
     Dates: start: 20080427

REACTIONS (2)
  - MEDICAL DEVICE COMPLICATION [None]
  - MEDICATION ERROR [None]
